FAERS Safety Report 5917701-6 (Version None)
Quarter: 2008Q4

REPORT INFORMATION
  Report Type: 
  Country: None (occurrence: None)
  Receive Date: 20081014
  Receipt Date: 20081013
  Transmission Date: 20090506
  Serious: Yes (Hospitalization)
  Sender: FDA-Public Use
  Company Number: DE-WYE-G02305608

PATIENT
  Sex: Male
  Weight: 80 kg

DRUGS (1)
  1. TREVILOR RETARD [Suspect]
     Indication: DEPRESSION
     Route: 048
     Dates: start: 20080711

REACTIONS (2)
  - CONDITION AGGRAVATED [None]
  - SUPRAVENTRICULAR EXTRASYSTOLES [None]
